FAERS Safety Report 9856609 (Version 1)
Quarter: 2014Q1

REPORT INFORMATION
  Report Type: Spontaneous
  Country: US (occurrence: US)
  Receive Date: 20140130
  Receipt Date: 20140130
  Transmission Date: 20141002
  Serious: Yes (Hospitalization)
  Sender: FDA-Public Use
  Company Number: US-B.I. PHARMACEUTICALS,INC./RIDGEFIELD-2014-BI-03962BP

PATIENT
  Age: 71 Year
  Sex: Female
  Weight: 79 kg

DRUGS (15)
  1. PRADAXA [Suspect]
     Indication: ATRIAL FIBRILLATION
     Dosage: 300 MG
     Route: 048
     Dates: start: 201304, end: 20131210
  2. ASPIRIN [Concomitant]
     Indication: CARDIAC DISORDER
     Dosage: 325 MG
     Route: 048
  3. PLETAL [Concomitant]
     Indication: PULMONARY VASCULAR DISORDER
     Dosage: 200 MG
     Route: 048
  4. COREG [Concomitant]
     Indication: ATRIAL FIBRILLATION
     Dosage: 25 MG
     Route: 048
  5. COREG [Concomitant]
     Indication: HYPERTENSION
  6. NORVASC [Concomitant]
     Indication: HYPERTENSION
     Dosage: 5 MG
     Route: 048
  7. DEMADEX [Concomitant]
     Indication: FLUID RETENTION
     Dosage: 20 MG
     Route: 048
  8. POTASSIUM CHLORIDE [Concomitant]
     Indication: SUPPLEMENTATION THERAPY
     Dosage: 60 MEQ
     Route: 048
  9. LIPITOR [Concomitant]
     Indication: BLOOD CHOLESTEROL INCREASED
     Dosage: 80 MG
     Route: 048
  10. PROTONIX [Concomitant]
     Indication: GASTROOESOPHAGEAL REFLUX DISEASE
     Dosage: 80 MG
     Route: 048
  11. CYMBALTA [Concomitant]
     Indication: DEPRESSION
     Dosage: 60 MG
     Route: 048
  12. CYMBALTA [Concomitant]
     Indication: PAIN IN EXTREMITY
  13. NEURONTIN [Concomitant]
     Indication: NEUROPATHY PERIPHERAL
     Dosage: 1200 MG
     Route: 048
  14. MAGOX [Concomitant]
     Indication: MINERAL SUPPLEMENTATION
     Dosage: 800 MG
     Route: 048
  15. B 12 INCECTION [Concomitant]
     Indication: PERNICIOUS ANAEMIA
     Dosage: FORMULATION: INTRAMASCULAR
     Route: 030

REACTIONS (2)
  - Cerebrovascular accident [Recovered/Resolved with Sequelae]
  - Blood urine present [Recovered/Resolved]
